FAERS Safety Report 4295210-0 (Version None)
Quarter: 2004Q1

REPORT INFORMATION
  Report Type: 
  Country: None (occurrence: None)
  Receive Date: 20040212
  Receipt Date: 20040129
  Transmission Date: 20041129
  Serious: Yes (Other)
  Sender: FDA-Public Use
  Company Number: 200323599BWH

PATIENT
  Age: 64 Year
  Sex: Female
  Weight: 106.5953 kg

DRUGS (4)
  1. CIPRO [Suspect]
     Indication: INFLAMMATION
     Dosage: 500 MG, BID, ORAL
     Route: 048
     Dates: start: 20030731, end: 20030804
  2. CIPRO [Suspect]
     Indication: LIGAMENT INJURY
     Dosage: 500 MG, BID, ORAL
     Route: 048
     Dates: start: 20030731, end: 20030804
  3. CIPRO [Suspect]
     Indication: LOCALISED INFECTION
     Dosage: 500 MG, BID, ORAL
     Route: 048
     Dates: start: 20030731, end: 20030804
  4. MULTI-VITAMINS [Concomitant]

REACTIONS (10)
  - CONFUSIONAL STATE [None]
  - CONVULSION [None]
  - DIZZINESS [None]
  - DYSPNOEA [None]
  - HEADACHE [None]
  - HYPERHIDROSIS [None]
  - LIP PAIN [None]
  - MENTAL IMPAIRMENT [None]
  - TREMOR [None]
  - VENTRICULAR EXTRASYSTOLES [None]
